FAERS Safety Report 4282919-8 (Version None)
Quarter: 2004Q1

REPORT INFORMATION
  Report Type: 
  Country: None (occurrence: None)
  Receive Date: 20040130
  Receipt Date: 20031117
  Transmission Date: 20041129
  Serious: No
  Sender: FDA-Public Use
  Company Number: US-BRISTOL-MYERS SQUIBB COMPANY-12439048

PATIENT
  Age: 50 Year
  Sex: Female

DRUGS (11)
  1. SERZONE [Suspect]
     Dosage: PRESCRIPTION FILLED 8-03-01, 1-16-02, AND 2-19-02
     Route: 048
     Dates: start: 20010101
  2. ESTRATEST [Concomitant]
  3. LORAZEPAM [Concomitant]
  4. NORTRIPTYLINE HCL [Concomitant]
  5. LEVAQUIN [Concomitant]
  6. ALPRAZOLAM [Concomitant]
  7. WELLBUTRIN SR [Concomitant]
  8. BUSPIRONE HCL [Concomitant]
  9. MACROBID [Concomitant]
     Route: 048
  10. CLARITIN-D [Concomitant]
     Route: 048
  11. HYDROCODONE + ACETAMINOPHEN [Concomitant]
     Route: 048

REACTIONS (6)
  - ABDOMINAL PAIN [None]
  - CHEST PAIN [None]
  - CHROMATURIA [None]
  - HEPATIC CYST [None]
  - HEPATIC ENZYME INCREASED [None]
  - JAUNDICE [None]
